FAERS Safety Report 25194698 (Version 2)
Quarter: 2025Q2

REPORT INFORMATION
  Report Type: Spontaneous
  Country: US (occurrence: US)
  Receive Date: 20250414
  Receipt Date: 20250627
  Transmission Date: 20250717
  Serious: No
  Sender: JOHNSON AND JOHNSON
  Company Number: US-JNJFOC-20250374444

PATIENT
  Age: 55 Year
  Sex: Female

DRUGS (3)
  1. XARELTO [Suspect]
     Active Substance: RIVAROXABAN
     Indication: Deep vein thrombosis
     Route: 048
     Dates: start: 20250324
  2. XARELTO [Suspect]
     Active Substance: RIVAROXABAN
     Route: 048
     Dates: start: 20250501
  3. ZOLOFT [Concomitant]
     Active Substance: SERTRALINE HYDROCHLORIDE
     Indication: Anxiety

REACTIONS (8)
  - Scratch [Unknown]
  - Wound haemorrhage [Unknown]
  - Pain [Unknown]
  - Pain [Unknown]
  - Pain in extremity [Unknown]
  - Dizziness [Unknown]
  - Feeling abnormal [Unknown]
  - Pain in extremity [Unknown]

NARRATIVE: CASE EVENT DATE: 20250301
